FAERS Safety Report 13626595 (Version 1)
Quarter: 2017Q2

REPORT INFORMATION
  Report Type: Spontaneous
  Country: US (occurrence: US)
  Receive Date: 20170531
  Receipt Date: 20170531
  Transmission Date: 20170830
  Serious: Yes (Hospitalization)
  Sender: FDA-Public Use
  Company Number: US-ASTELLAS-1419696

PATIENT
  Sex: Male

DRUGS (2)
  1. TARCEVA [Suspect]
     Active Substance: ERLOTINIB HYDROCHLORIDE
     Indication: LUNG NEOPLASM MALIGNANT
     Route: 048
     Dates: start: 20140606
  2. OXYCODONE [Concomitant]
     Active Substance: OXYCODONE

REACTIONS (4)
  - Musculoskeletal pain [Unknown]
  - Dyspnoea [Unknown]
  - Decreased appetite [Unknown]
  - Rash [Unknown]
